FAERS Safety Report 5091914-0 (Version None)
Quarter: 2006Q3

REPORT INFORMATION
  Report Type: 
  Country: None (occurrence: None)
  Receive Date: 20060825
  Receipt Date: 20060808
  Transmission Date: 20061208
  Serious: Yes (Death, Hospitalization)
  Sender: FDA-Public Use
  Company Number: US_0507119913

PATIENT
  Age: 46 Year
  Sex: Male
  Weight: 63.4 kg

DRUGS (1)
  1. F1D-MC-HGLB OLANZAPINE VS ARIPIPRAZOLE 1 (OLANZAPINE) UNKNOWN [Suspect]
     Indication: SCHIZOPHRENIA
     Dosage: 17.5 MG, DAILY (1/D), ORAL
     Route: 048
     Dates: start: 20050203, end: 20050705

REACTIONS (16)
  - ASCITES [None]
  - BLOOD CREATININE INCREASED [None]
  - BLOOD GLUCOSE INCREASED [None]
  - BLOOD LACTATE DEHYDROGENASE INCREASED [None]
  - BLOOD UREA INCREASED [None]
  - CARDIAC ARREST [None]
  - CARDIOMEGALY [None]
  - COMA [None]
  - FLATULENCE [None]
  - GRAND MAL CONVULSION [None]
  - PANCREATITIS ACUTE [None]
  - PNEUMONIA [None]
  - PSOAS SIGN [None]
  - PULMONARY CONGESTION [None]
  - PURULENT DISCHARGE [None]
  - RESPIRATORY FAILURE [None]
